FAERS Safety Report 11184457 (Version 3)
Quarter: 2022Q1

REPORT INFORMATION
  Report Type: Report from Study
  Country: JP (occurrence: JP)
  Receive Date: 20150612
  Receipt Date: 20220214
  Transmission Date: 20220423
  Serious: Yes (Death, Hospitalization)
  Sender: FDA-Public Use
  Company Number: JP-VALEANT-SYM-2014-20362

PATIENT
  Age: 33 Year
  Sex: Female
  Weight: 50 kg

DRUGS (12)
  1. TETRABENAZINE [Suspect]
     Active Substance: TETRABENAZINE
     Indication: Huntington^s disease
     Route: 048
     Dates: start: 20130304, end: 20130331
  2. TETRABENAZINE [Suspect]
     Active Substance: TETRABENAZINE
     Route: 048
     Dates: start: 20130401
  3. TETRABENAZINE [Suspect]
     Active Substance: TETRABENAZINE
     Route: 048
  4. LIORESAL [Concomitant]
     Active Substance: BACLOFEN
     Indication: Product used for unknown indication
     Route: 048
     Dates: start: 20110310
  5. VITANEURIN [Concomitant]
     Indication: Product used for unknown indication
     Route: 048
     Dates: start: 20110713
  6. BIO-THREE [Concomitant]
     Active Substance: HERBALS
     Indication: Constipation
     Route: 048
     Dates: start: 20110823
  7. TEPRENONE [Concomitant]
     Active Substance: TEPRENONE
     Indication: Product used for unknown indication
     Route: 048
     Dates: start: 20110310
  8. ETHYL LOFLAZEPATE [Concomitant]
     Active Substance: ETHYL LOFLAZEPATE
     Indication: Product used for unknown indication
     Route: 048
     Dates: start: 20110310
  9. DIMETHICONE [Concomitant]
     Active Substance: DIMETHICONE
     Indication: Constipation
     Route: 048
     Dates: start: 20120729
  10. MOSAPRIDE CITRATE [Concomitant]
     Active Substance: MOSAPRIDE CITRATE
     Indication: Constipation
     Route: 048
     Dates: start: 20120729
  11. BACLOFEN [Concomitant]
     Active Substance: BACLOFEN
     Indication: Product used for unknown indication
     Route: 048
  12. TRIHEXYPHENIDYL [Concomitant]
     Active Substance: TRIHEXYPHENIDYL
     Indication: Product used for unknown indication
     Route: 065

REACTIONS (3)
  - Death [Fatal]
  - Urinary tract infection [Recovered/Resolved]
  - Dysphagia [Not Recovered/Not Resolved]

NARRATIVE: CASE EVENT DATE: 20130722
